FAERS Safety Report 4722110-1 (Version None)
Quarter: 2005Q3

REPORT INFORMATION
  Report Type: 
  Country: None (occurrence: None)
  Receive Date: 20050720
  Receipt Date: 20050704
  Transmission Date: 20060218
  Serious: Yes (Other)
  Sender: FDA-Public Use
  Company Number: 8011091

PATIENT

DRUGS (1)
  1. HYDROCODONE/ ACETAMINOPHEN [Suspect]
     Dosage: NAS

REACTIONS (8)
  - CANDIDIASIS [None]
  - DRUG ABUSER [None]
  - DYSPHASIA [None]
  - FISTULA [None]
  - INTENTIONAL MISUSE [None]
  - PALATAL DISORDER [None]
  - SINUS DISORDER [None]
  - SINUS PERFORATION [None]
